FAERS Safety Report 6096224-0 (Version None)
Quarter: 2009Q1

REPORT INFORMATION
  Report Type: 
  Country: None (occurrence: None)
  Receive Date: 20090227
  Receipt Date: 20081007
  Transmission Date: 20090719
  Serious: No
  Sender: FDA-Public Use
  Company Number: A0750811A

PATIENT
  Age: 18 Year
  Sex: Female

DRUGS (8)
  1. LAMICTAL [Suspect]
     Indication: BIPOLAR DISORDER
     Dosage: 200MG TWICE PER DAY
     Route: 048
     Dates: start: 20080501
  2. NEURONTIN [Concomitant]
  3. PREVACID [Concomitant]
  4. UNSPECIFIED MEDICATION [Concomitant]
  5. SYMBICORT [Concomitant]
  6. NASONEX [Concomitant]
  7. ASTELIN [Concomitant]
  8. MAXALT [Concomitant]

REACTIONS (2)
  - PRURITUS [None]
  - RASH ERYTHEMATOUS [None]
